FAERS Safety Report 4398805-9 (Version None)
Quarter: 2004Q3

REPORT INFORMATION
  Report Type: 
  Country: None (occurrence: None)
  Receive Date: 20040712
  Receipt Date: 20040701
  Transmission Date: 20050211
  Serious: Yes (Hospitalization)
  Sender: FDA-Public Use
  Company Number: 2004-BP-05237RO

PATIENT
  Age: 67 Year
  Sex: Male
  Weight: 79.8 kg

DRUGS (10)
  1. PREDNISONE TAB [Suspect]
     Indication: MANTLE CELL LYMPHOMA
     Dosage: 100 MG/DAY FOR 5 DAYS (R-CHOP 1 CYCLE EVERY 21 DAYS) PE
     Dates: start: 20040223
  2. GENASENSE [Suspect]
     Indication: MANTLE CELL LYMPHOMA
     Dosage: 4 MG/KG/DAY (7 DAY CYCLE EVERY 21 DAYS) IV
     Route: 042
     Dates: start: 20031212
  3. RITUXIMAB (RITUXIMAB) [Suspect]
     Indication: MANTLE CELL LYMPHOMA
     Dosage: 375 MG/M2 (R-CHOP 1 CYCLE EVERY 21 DAYS) IV
     Route: 042
     Dates: start: 20040223
  4. CYCLOPHOSPHAMIDE [Suspect]
     Indication: MANTLE CELL LYMPHOMA
     Dosage: 750 M G/M2 (R-CHOP 1 CYCLE EVERY 21 DAYS) IV
     Route: 042
     Dates: start: 20040223
  5. DOXORUBICIN HCL [Suspect]
     Indication: MANTLE CELL LYMPHOMA
     Dosage: 50 MG/M2 (R-CHOP 1 CYCLE EVERY 21 DAYS) IV
     Route: 042
     Dates: start: 20040223
  6. VINCRISTINE [Suspect]
     Indication: MANTLE CELL LYMPHOMA
     Dosage: 1.4 MG/M2 (R-CHOP 1 CYCLE EVERY 21 DAYS) IV
     Route: 042
     Dates: start: 20040223
  7. ACETAMINOPHEN [Concomitant]
  8. IBUPROFEN [Concomitant]
  9. LANSOPRAZOLE [Concomitant]
  10. MULTIVITAMIN [Concomitant]

REACTIONS (2)
  - FEBRILE NEUTROPENIA [None]
  - WHITE BLOOD CELL COUNT DECREASED [None]
